FAERS Safety Report 4264884-2 (Version None)
Quarter: 2004Q1

REPORT INFORMATION
  Report Type: 
  Country: None (occurrence: None)
  Receive Date: 20040105
  Receipt Date: 20031215
  Transmission Date: 20041129
  Serious: Yes (Hospitalization)
  Sender: FDA-Public Use
  Company Number: DSA_23672_2003

PATIENT
  Age: 65 Year
  Sex: Female

DRUGS (3)
  1. ENALAPRIL MALEATE [Suspect]
  2. LITHIUM CARBONATE [Suspect]
     Dosage: 1200 MG Q DAY PO
     Route: 048
  3. LITHIUM CARBONATE [Suspect]
     Dosage: 600 MG Q DAY PO
     Route: 048

REACTIONS (10)
  - ATAXIA [None]
  - CHOREOATHETOSIS [None]
  - DEPRESSED LEVEL OF CONSCIOUSNESS [None]
  - DISORIENTATION [None]
  - DRUG INTERACTION [None]
  - DYSKINESIA [None]
  - ELECTROENCEPHALOGRAM ABNORMAL [None]
  - HYPOMANIA [None]
  - RENAL IMPAIRMENT [None]
  - THERAPEUTIC AGENT TOXICITY [None]
